FAERS Safety Report 9286400 (Version 1)
Quarter: 2013Q2

REPORT INFORMATION
  Report Type: Spontaneous
  Country: US (occurrence: US)
  Receive Date: 20130513
  Receipt Date: 20130513
  Transmission Date: 20140414
  Serious: Yes (Congenital Anomaly)
  Sender: FDA-Public Use
  Company Number: US-FRI-1000045010

PATIENT
  Age: 0 Year
  Sex: Female

DRUGS (1)
  1. CELEXA [Suspect]
     Route: 064
     Dates: end: 20020910

REACTIONS (4)
  - Cleft palate [Unknown]
  - Pulmonary artery stenosis congenital [Unknown]
  - Ventricular septal defect [Unknown]
  - Congenital anomaly [Unknown]
